FAERS Safety Report 4490558-9 (Version None)
Quarter: 2004Q4

REPORT INFORMATION
  Report Type: 
  Country: None (occurrence: None)
  Receive Date: 20041102
  Receipt Date: 20041026
  Transmission Date: 20050328
  Serious: Yes (Hospitalization)
  Sender: FDA-Public Use
  Company Number: JP-MERCK-0410USA04164

PATIENT
  Age: 17 Year
  Sex: Female

DRUGS (17)
  1. PEPCID [Suspect]
     Route: 042
     Dates: start: 20041011, end: 20041001
  2. PEPCID [Suspect]
     Route: 042
     Dates: start: 20041001, end: 20041025
  3. ZANTAC [Concomitant]
     Route: 048
     Dates: start: 20041025
  4. MIRACLID [Concomitant]
     Route: 042
     Dates: start: 20041012, end: 20041012
  5. MIRACLID [Concomitant]
     Route: 042
     Dates: start: 20041013
  6. FOY [Concomitant]
     Route: 042
     Dates: start: 20041011, end: 20041011
  7. FOY [Concomitant]
     Route: 042
     Dates: start: 20041012, end: 20041014
  8. FOY [Concomitant]
     Route: 041
     Dates: start: 20041015
  9. [THERAPY UNSPECIFIED] [Concomitant]
     Route: 042
     Dates: start: 20041011
  10. PENTCILLIN [Concomitant]
     Route: 042
     Dates: start: 20041011, end: 20041013
  11. FLUMARIN [Concomitant]
     Route: 042
     Dates: start: 20041014, end: 20041021
  12. STRONGER NEO-MINOPHAGEN C [Concomitant]
     Route: 042
     Dates: start: 20041016, end: 20041020
  13. STRONGER NEO-MINOPHAGEN C [Concomitant]
     Route: 042
     Dates: start: 20041021
  14. ATARAX [Concomitant]
     Route: 065
     Dates: start: 20041011, end: 20041012
  15. SOSEGON [Concomitant]
     Route: 065
     Dates: start: 20041011, end: 20041012
  16. ATROPINE SULFATE [Concomitant]
     Route: 065
     Dates: start: 20041012, end: 20041012
  17. BUSCOPAN [Concomitant]
     Route: 030
     Dates: start: 20041011, end: 20041011

REACTIONS (1)
  - HAEMOLYTIC ANAEMIA [None]
